FAERS Safety Report 8338168-7 (Version None)
Quarter: 2012Q2

REPORT INFORMATION
  Report Type: 
  Country: None (occurrence: None)
  Receive Date: 20120504
  Receipt Date: 20120425
  Transmission Date: 20120825
  Serious: Yes (Other)
  Sender: FDA-Public Use
  Company Number: US-ASTRAZENECA-2012SE27213

PATIENT
  Age: 55 Year
  Sex: Female

DRUGS (1)
  1. NEXIUM [Suspect]
     Route: 048

REACTIONS (5)
  - DYSPEPSIA [None]
  - TREATMENT NONCOMPLIANCE [None]
  - PARALYSIS [None]
  - ROAD TRAFFIC ACCIDENT [None]
  - INTENTIONAL DRUG MISUSE [None]
